FAERS Safety Report 4983074-9 (Version None)
Quarter: 2006Q2

REPORT INFORMATION
  Report Type: 
  Country: None (occurrence: None)
  Receive Date: 20060419
  Receipt Date: 20060405
  Transmission Date: 20061013
  Serious: Yes (Death, Hospitalization)
  Sender: FDA-Public Use
  Company Number: 2006BH007545

PATIENT
  Age: 68 Year
  Sex: Male
  Weight: 68.5 kg

DRUGS (19)
  1. EXTRANEAL [Suspect]
     Indication: PERITONEAL DIALYSIS
     Dosage: 2 L; EVERY DAY
     Dates: end: 20051119
  2. INSULIN  ACTRAPID HUMAN (INSULIN HUMAN) [Suspect]
     Dosage: EVERY 4 HR; SC
     Route: 058
     Dates: start: 20051116, end: 20051116
  3. UMULINE (INSULIN HUMAN ZINC SUSPENSION) [Suspect]
     Dosage: AS NEEDED; IV
     Route: 042
     Dates: start: 20051117, end: 20051119
  4. TRIATEC [Concomitant]
  5. CELECTOL [Concomitant]
  6. AMLOR [Concomitant]
  7. CALCIDIA [Concomitant]
  8. EUROBIOL [Concomitant]
  9. TARDYFERON [Concomitant]
  10. LESCOL [Concomitant]
  11. LASILIX [Concomitant]
  12. HEXAQUINE [Concomitant]
  13. UN-ALFA [Concomitant]
  14. VALIUM [Concomitant]
  15. EPOETIN NOS [Concomitant]
  16. EUPRESSYL [Concomitant]
  17. MIDAZOLAM [Concomitant]
  18. GLUCOSE (DEXTROSE) SOLUTION FOR INTRAVENOUS INFUSION 10% [Concomitant]
  19. GLUCOSE (DEXTROSE) SOLUTION FOR INTRAVENOUS INFUSION 10% [Concomitant]

REACTIONS (10)
  - AORTIC ANEURYSM [None]
  - BRADYCARDIA [None]
  - BRAIN OEDEMA [None]
  - CARDIAC ARREST [None]
  - FALSE POSITIVE LABORATORY RESULT [None]
  - HAEMODYNAMIC INSTABILITY [None]
  - HYPERTENSIVE ENCEPHALOPATHY [None]
  - HYPOGLYCAEMIA [None]
  - LABORATORY TEST INTERFERENCE [None]
  - NERVOUS SYSTEM DISORDER [None]
